FAERS Safety Report 7416335-4 (Version None)
Quarter: 2011Q2

REPORT INFORMATION
  Report Type: 
  Country: None (occurrence: None)
  Receive Date: 20110414
  Receipt Date: 20110412
  Transmission Date: 20111010
  Serious: Yes (Life-Threatening, Hospitalization)
  Sender: FDA-Public Use
  Company Number: US-B.I. PHARMACEUTICALS,INC./RIDGEFIELD-2011-BP-00943BP

PATIENT
  Age: 84 Year
  Sex: Female
  Weight: 61.69 kg

DRUGS (2)
  1. PRADAXA [Suspect]
     Indication: ATRIAL FIBRILLATION
     Dosage: 300 MG
     Dates: start: 20101209
  2. CAPTOPRIL [Concomitant]

REACTIONS (6)
  - ANAEMIA [None]
  - MELAENA [None]
  - SMALL INTESTINAL HAEMORRHAGE [None]
  - OCCULT BLOOD POSITIVE [None]
  - GASTROINTESTINAL HAEMORRHAGE [None]
  - GASTROINTESTINAL ULCER [None]
